FAERS Safety Report 6146131-X (Version None)
Quarter: 2009Q2

REPORT INFORMATION
  Report Type: 
  Country: None (occurrence: None)
  Receive Date: 20090407
  Receipt Date: 20090404
  Transmission Date: 20091009
  Serious: Yes (Hospitalization)
  Sender: FDA-Public Use
  Company Number: SA-BAYER-200917620GPV

PATIENT
  Age: 21 Year
  Sex: Female

DRUGS (1)
  1. NEXAVAR [Suspect]
     Indication: SUICIDE ATTEMPT
     Dosage: TOTAL DAILY DOSE: 4800 MG  UNIT DOSE: 200 MG
     Route: 048
     Dates: start: 20090401, end: 20090401

REACTIONS (5)
  - ABDOMINAL PAIN UPPER [None]
  - DRUG TOXICITY [None]
  - INSOMNIA [None]
  - IRRITABILITY [None]
  - NAUSEA [None]
